FAERS Safety Report 13999977 (Version 4)
Quarter: 2017Q4

REPORT INFORMATION
  Report Type: Spontaneous
  Country: US (occurrence: US)
  Receive Date: 20170922
  Receipt Date: 20171107
  Transmission Date: 20180321
  Serious: No
  Sender: FDA-Public Use
  Company Number: PHEH2017US030264

PATIENT
  Sex: Male

DRUGS (4)
  1. BESIVANCE [Concomitant]
     Active Substance: BESIFLOXACIN
     Indication: PRODUCT USED FOR UNKNOWN INDICATION
     Route: 065
  2. ILEVRO [Suspect]
     Active Substance: NEPAFENAC
     Indication: POSTOPERATIVE CARE
     Dosage: UNK, QD
     Route: 047
     Dates: start: 20170915
  3. DUREZOL [Concomitant]
     Active Substance: DIFLUPREDNATE
     Indication: PRODUCT USED FOR UNKNOWN INDICATION
     Route: 065
  4. ILEVRO [Suspect]
     Active Substance: NEPAFENAC
     Indication: PREOPERATIVE CARE
     Dosage: 5 DOSE
     Route: 047
     Dates: start: 20170913, end: 20170913

REACTIONS (3)
  - Product lot number issue [Unknown]
  - Product packaging quantity issue [Unknown]
  - Product expiration date issue [Unknown]
